FAERS Safety Report 5536791-6 (Version None)
Quarter: 2007Q4

REPORT INFORMATION
  Report Type: 
  Country: None (occurrence: None)
  Receive Date: 20071206
  Receipt Date: 20070412
  Transmission Date: 20080405
  Serious: Yes (Hospitalization, Other)
  Sender: FDA-Public Use
  Company Number: US-AMGEN-KDL217490

PATIENT
  Sex: Female
  Weight: 84.4 kg

DRUGS (13)
  1. ENBREL [Suspect]
     Indication: PSORIATIC ARTHROPATHY
     Route: 058
     Dates: start: 19990412
  2. AZULFIDINE EN-TABS [Suspect]
     Dates: start: 20020401
  3. MOBIC [Concomitant]
     Dates: start: 20041216
  4. FEXOFENADINE [Concomitant]
  5. FOLIC ACID [Concomitant]
     Dates: start: 19990412
  6. AMBIEN [Concomitant]
     Dates: start: 20021230
  7. SINGULAIR [Concomitant]
  8. ADVAIR DISKUS 100/50 [Concomitant]
  9. SPIRIVA [Concomitant]
  10. DIPROLENE [Concomitant]
     Route: 061
     Dates: start: 20050418
  11. NEXIUM [Concomitant]
  12. ALBUTEROL [Concomitant]
  13. CALTRATE [Concomitant]

REACTIONS (8)
  - ARTHROPATHY [None]
  - ASTHMA [None]
  - BRONCHITIS [None]
  - HYPERSENSITIVITY [None]
  - KIDNEY INFECTION [None]
  - PAIN IN EXTREMITY [None]
  - PNEUMONIA [None]
  - URINARY TRACT INFECTION [None]
